FAERS Safety Report 4501352-4 (Version None)
Quarter: 2004Q4

REPORT INFORMATION
  Report Type: 
  Country: None (occurrence: None)
  Receive Date: 20041109
  Receipt Date: 20041021
  Transmission Date: 20050328
  Serious: Yes (Other)
  Sender: FDA-Public Use
  Company Number: USA041082013

PATIENT
  Sex: Female

DRUGS (1)
  1. HUMATROPE [Suspect]

REACTIONS (3)
  - AMNESIA [None]
  - BRAIN OPERATION [None]
  - POST PROCEDURAL COMPLICATION [None]
